FAERS Safety Report 6320992-3 (Version None)
Quarter: 2009Q3

REPORT INFORMATION
  Report Type: 
  Country: None (occurrence: None)
  Receive Date: 20090822
  Receipt Date: 20081222
  Transmission Date: 20100115
  Serious: No
  Sender: FDA-Public Use
  Company Number: US-ABBOTT-08P-163-0494363-00

PATIENT
  Sex: Male

DRUGS (25)
  1. NIASPAN [Suspect]
     Indication: HIGH DENSITY LIPOPROTEIN DECREASED
     Dosage: DAILY AT BEDTIME
     Dates: start: 20081201
  2. ALBUTEROL [Concomitant]
     Indication: DRUG USE FOR UNKNOWN INDICATION
  3. PROVENTIL-HFA [Concomitant]
     Indication: DRUG USE FOR UNKNOWN INDICATION
  4. WARFARIN [Concomitant]
     Indication: DRUG USE FOR UNKNOWN INDICATION
  5. LISINOPRIL [Concomitant]
     Indication: DRUG USE FOR UNKNOWN INDICATION
  6. DILTIAZEM [Concomitant]
     Indication: DRUG USE FOR UNKNOWN INDICATION
  7. ADVAIR HFA [Concomitant]
     Indication: DRUG USE FOR UNKNOWN INDICATION
  8. BETAMETHASONE [Concomitant]
     Indication: DRUG USE FOR UNKNOWN INDICATION
  9. ISOSORBIDE DINITRATE [Concomitant]
     Indication: DRUG USE FOR UNKNOWN INDICATION
  10. TRAMADOL [Concomitant]
     Indication: DRUG USE FOR UNKNOWN INDICATION
  11. NITROGLYCERIN [Concomitant]
     Indication: DRUG USE FOR UNKNOWN INDICATION
  12. ALLOPURINOL [Concomitant]
     Indication: DRUG USE FOR UNKNOWN INDICATION
  13. DIGOXIN [Concomitant]
     Indication: DRUG USE FOR UNKNOWN INDICATION
  14. METOPROLOL [Concomitant]
     Indication: DRUG USE FOR UNKNOWN INDICATION
  15. ATACAND [Concomitant]
     Indication: DRUG USE FOR UNKNOWN INDICATION
  16. FUROSEMIDE [Concomitant]
     Indication: DRUG USE FOR UNKNOWN INDICATION
  17. LIPITOR [Concomitant]
     Indication: DRUG USE FOR UNKNOWN INDICATION
  18. DOXAZOSIN [Concomitant]
     Indication: DRUG USE FOR UNKNOWN INDICATION
  19. ALPRAZOLAM [Concomitant]
     Indication: DRUG USE FOR UNKNOWN INDICATION
  20. CYCLOBENZAPRINE [Concomitant]
     Indication: DRUG USE FOR UNKNOWN INDICATION
  21. CLINDAMYCIN [Concomitant]
     Indication: ANTIBIOTIC PROPHYLAXIS
  22. CALCIUM+VIT D [Concomitant]
     Indication: DRUG USE FOR UNKNOWN INDICATION
  23. ASPIRIN [Concomitant]
     Indication: DRUG USE FOR UNKNOWN INDICATION
  24. DARVOCET [Concomitant]
     Indication: DRUG USE FOR UNKNOWN INDICATION
  25. BENADRYL [Concomitant]
     Indication: DRUG USE FOR UNKNOWN INDICATION

REACTIONS (1)
  - PRURITUS [None]
